FAERS Safety Report 7914059-8 (Version None)
Quarter: 2011Q4

REPORT INFORMATION
  Report Type: 
  Country: None (occurrence: None)
  Receive Date: 20111115
  Receipt Date: 20111104
  Transmission Date: 20120403
  Serious: Yes (Other)
  Sender: FDA-Public Use
  Company Number: AR-AMGEN-ARGSP2011056567

PATIENT
  Age: 51 Year
  Sex: Female

DRUGS (2)
  1. ENBREL [Suspect]
     Indication: RHEUMATOID ARTHRITIS
     Dosage: 50 MG, WEEKLY
     Route: 058
     Dates: start: 20101117, end: 20110901
  2. LEFLUNOMIDE [Concomitant]
     Dosage: UNK
     Route: 048

REACTIONS (6)
  - STOMATITIS [None]
  - INFLUENZA [None]
  - PNEUMONIA [None]
  - APTYALISM [None]
  - RED BLOOD CELL SEDIMENTATION RATE INCREASED [None]
  - CORNEAL ABSCESS [None]
